FAERS Safety Report 4553463-5 (Version None)
Quarter: 2005Q1

REPORT INFORMATION
  Report Type: 
  Country: None (occurrence: None)
  Receive Date: 20050112
  Receipt Date: 20050104
  Transmission Date: 20050727
  Serious: Yes (Life-Threatening, Hospitalization)
  Sender: FDA-Public Use
  Company Number: 2005-01-0238

PATIENT
  Age: 48 Year
  Sex: Male

DRUGS (10)
  1. TEMODAL [Suspect]
     Indication: GLIOBLASTOMA MULTIFORME
     Dosage: 150 MG/M^2 ORAL
     Route: 048
     Dates: start: 20020201, end: 20041105
  2. TOPAMAX [Concomitant]
  3. CLONAZEPAM [Concomitant]
  4. ASPIRIN [Concomitant]
  5. VALTREX [Concomitant]
  6. STOCRIN (EFAVIRENZ) [Concomitant]
  7. LAMIVUDINE [Concomitant]
  8. VIREAD [Concomitant]
  9. ROCEPHIN [Concomitant]
  10. FRAGMIN [Concomitant]

REACTIONS (1)
  - CEREBROVASCULAR ACCIDENT [None]
